FAERS Safety Report 20900782 (Version 2)
Quarter: 2022Q2

REPORT INFORMATION
  Report Type: Spontaneous
  Country: US (occurrence: US)
  Receive Date: 20220601
  Receipt Date: 20220617
  Transmission Date: 20220721
  Serious: No
  Sender: FDA-Public Use
  Company Number: US-PFIZER INC-202200783369

PATIENT
  Age: 56 Year
  Sex: Female
  Weight: 81.633 kg

DRUGS (2)
  1. PAXLOVID [Suspect]
     Active Substance: NIRMATRELVIR\RITONAVIR
     Indication: COVID-19 treatment
     Dosage: 1 DF (300-100 MG PACK, 2X/DAY
     Dates: start: 20220524, end: 20220528
  2. OLAY COMPLETE UV DEFENCE MOISTURE LOTION [Concomitant]
     Dosage: UNK

REACTIONS (5)
  - Rosacea [Recovered/Resolved]
  - Disease recurrence [Recovered/Resolved]
  - Flushing [Recovered/Resolved]
  - Sunburn [Unknown]
  - Erythema [Unknown]

NARRATIVE: CASE EVENT DATE: 20220101
